FAERS Safety Report 13082653 (Version 1)
Quarter: 2017Q1

REPORT INFORMATION
  Report Type: Spontaneous
  Country: IT (occurrence: IT)
  Receive Date: 20170103
  Receipt Date: 20170103
  Transmission Date: 20170428
  Serious: Yes (Other)
  Sender: FDA-Public Use
  Company Number: PHHY2016IT176513

PATIENT
  Age: 72 Year
  Sex: Female

DRUGS (2)
  1. AMANTADINE [Suspect]
     Active Substance: AMANTADINE
     Indication: PARKINSONISM
     Route: 065
  2. LEVODOPA [Suspect]
     Active Substance: LEVODOPA
     Indication: PARKINSONISM
     Route: 065

REACTIONS (9)
  - Polyuria [Unknown]
  - Neuroleptic malignant syndrome [Unknown]
  - Blood creatine phosphokinase increased [Unknown]
  - Blood pressure increased [Unknown]
  - Hyperpyrexia [Unknown]
  - Hypokalaemia [Unknown]
  - General physical health deterioration [Unknown]
  - Sinus tachycardia [Unknown]
  - Rhabdomyolysis [Unknown]
